FAERS Safety Report 9508580 (Version 2)
Quarter: 2013Q4

REPORT INFORMATION
  Report Type: Spontaneous
  Country: US (occurrence: US)
  Receive Date: 20130909
  Receipt Date: 20131001
  Transmission Date: 20140711
  Serious: No
  Sender: FDA-Public Use
  Company Number: US-009507513-1309USA002298

PATIENT
  Sex: 0

DRUGS (2)
  1. MIRALAX [Suspect]
     Indication: CONSTIPATION
     Dosage: 51 G, ONCE
     Route: 048
     Dates: start: 20130826
  2. MIRALAX [Suspect]
     Indication: MEDICAL OBSERVATION

REACTIONS (2)
  - Drug ineffective [Unknown]
  - Overdose [Unknown]
